FAERS Safety Report 5420878-2 (Version None)
Quarter: 2007Q3

REPORT INFORMATION
  Report Type: 
  Country: None (occurrence: None)
  Receive Date: 20070817
  Receipt Date: 20070817
  Transmission Date: 20080115
  Serious: Yes (Other)
  Sender: FDA-Public Use
  Company Number: None

PATIENT
  Sex: Female
  Weight: 80.62 kg

DRUGS (1)
  1. TAXOL [Suspect]
     Dates: start: 20070803, end: 20070803

REACTIONS (3)
  - BACK PAIN [None]
  - CHEST DISCOMFORT [None]
  - INFUSION RELATED REACTION [None]
